FAERS Safety Report 7079317-0 (Version None)
Quarter: 2010Q4

REPORT INFORMATION
  Report Type: 
  Country: None (occurrence: None)
  Receive Date: 20101102
  Receipt Date: 20091022
  Transmission Date: 20110411
  Serious: No
  Sender: FDA-Public Use
  Company Number: A0812974A

PATIENT
  Age: 63 Year
  Sex: Male

DRUGS (8)
  1. RYTHMOL SR [Suspect]
     Indication: ATRIAL FIBRILLATION
     Dosage: 225MG TWICE PER DAY
     Route: 048
     Dates: start: 20091015
  2. LOPRESSOR [Concomitant]
  3. METHADONE [Concomitant]
  4. PERCOCET [Concomitant]
  5. COUMADIN [Concomitant]
  6. LIPITOR [Concomitant]
  7. PROSCAR [Concomitant]
  8. LISINOPRIL [Concomitant]

REACTIONS (1)
  - DYSGEUSIA [None]
